FAERS Safety Report 6554965-2 (Version None)
Quarter: 2010Q1

REPORT INFORMATION
  Report Type: 
  Country: None (occurrence: None)
  Receive Date: 20100127
  Receipt Date: 20100115
  Transmission Date: 20100710
  Serious: Yes (Other)
  Sender: FDA-Public Use
  Company Number: US-JNJFOC-20100106300

PATIENT
  Age: 74 Year
  Sex: Female
  Weight: 61.69 kg

DRUGS (4)
  1. TYLENOL 8 HOUR MUSCLES + PAIN [Suspect]
  2. TYLENOL 8 HOUR MUSCLES + PAIN [Suspect]
     Indication: PAIN
     Dosage: 1300 MG 2-3 TIMES PER DAY AS NEEDED
  3. SYNTHROID [Concomitant]
     Indication: HYPOTHYROIDISM
  4. VYTORIN [Concomitant]
     Indication: BLOOD CHOLESTEROL INCREASED
     Dosage: 10/20 MG DAILY

REACTIONS (9)
  - CARDIAC FLUTTER [None]
  - DIZZINESS [None]
  - FATIGUE [None]
  - LYMPHADENOPATHY [None]
  - MYALGIA [None]
  - NAUSEA [None]
  - PRODUCT QUALITY ISSUE [None]
  - UPPER RESPIRATORY TRACT INFECTION [None]
  - WEIGHT DECREASED [None]
